FAERS Safety Report 22174800 (Version 3)
Quarter: 2023Q2

REPORT INFORMATION
  Report Type: Spontaneous
  Country: CN (occurrence: CN)
  Receive Date: 20230405
  Receipt Date: 20230418
  Transmission Date: 20230721
  Serious: Yes (Other)
  Sender: FDA-Public Use
  Company Number: CN-UCBSA-2023017025

PATIENT
  Age: 13 Year
  Sex: Male
  Weight: 54 kg

DRUGS (3)
  1. KEPPRA [Suspect]
     Active Substance: LEVETIRACETAM
     Indication: Product used for unknown indication
     Dosage: 0.5 GRAM, 2X/DAY (BID)
     Dates: start: 20220701
  2. KEPPRA [Suspect]
     Active Substance: LEVETIRACETAM
     Dosage: GRADUALLY INCREASING BY 0.25G BASED ON THE MORNING AND EVENING
  3. KEPPRA [Suspect]
     Active Substance: LEVETIRACETAM
     Dosage: ONCE IN THE MORNING AND ONCE IN THE EVENING

REACTIONS (3)
  - Condition aggravated [Not Recovered/Not Resolved]
  - Drug ineffective [Unknown]
  - Off label use [Unknown]

NARRATIVE: CASE EVENT DATE: 20230201
